FAERS Safety Report 6836730-1 (Version None)
Quarter: 2010Q3

REPORT INFORMATION
  Report Type: 
  Country: None (occurrence: None)
  Receive Date: 20100708
  Receipt Date: 20100623
  Transmission Date: 20110219
  Serious: Yes (Hospitalization, Other)
  Sender: FDA-Public Use
  Company Number: 1-230156004

PATIENT
  Age: 57 Year
  Sex: Male
  Weight: 131.7246 kg

DRUGS (22)
  1. SANTYL [Suspect]
     Indication: WOUND
     Dosage: 250 UNITS/G, 2 TIMES A DAY, TOPICAL
     Route: 061
     Dates: start: 20100602, end: 20100614
  2. AMLODIPINE [Concomitant]
  3. METOOPROLOL SUCCINATE [Concomitant]
  4. SPIRONOLATONE [Concomitant]
  5. TAMSUFOSIN [Concomitant]
  6. ZINC SULFATE [Concomitant]
  7. AMIODARONE HCL [Concomitant]
  8. FURSOMIDE [Concomitant]
  9. MULTIVITAMIN WITH MINIRALS [Concomitant]
  10. OMEPRAZOLE [Concomitant]
  11. ACETAMINOPHEN [Concomitant]
  12. DIGOXIN [Concomitant]
  13. DISACDYL [Concomitant]
  14. MILK OF MAGNESIA SUSPENSION [Concomitant]
  15. LISINOPRIL [Concomitant]
  16. VANCOMYCIN [Concomitant]
  17. FERROUS SULFATE [Concomitant]
  18. LEVOTHYROXINE SODIUM [Concomitant]
  19. ASCROBIC ACID [Concomitant]
  20. LEVALBUTEROL HCL [Concomitant]
  21. WARFARIN SODIUM [Concomitant]
  22. NYSTATIN [Concomitant]

REACTIONS (3)
  - NEPHRITIS [None]
  - RASH [None]
  - RENAL FAILURE ACUTE [None]
